FAERS Safety Report 9058642 (Version 3)
Quarter: 2013Q1

REPORT INFORMATION
  Report Type: Report from Study
  Country: JP (occurrence: JP)
  Receive Date: 20130211
  Receipt Date: 20130311
  Transmission Date: 20140127
  Serious: Yes (Other)
  Sender: FDA-Public Use
  Company Number: JP-JNJFOC-20130111929

PATIENT
  Age: 70 None
  Sex: Female

DRUGS (5)
  1. REMINYL [Suspect]
     Indication: DEMENTIA ALZHEIMER^S TYPE
     Route: 048
     Dates: start: 20120313, end: 20120522
  2. CRESTOR [Suspect]
     Indication: HYPERLIPIDAEMIA
     Route: 048
     Dates: end: 20120522
  3. URSO [Concomitant]
     Indication: LIVER DISORDER
     Route: 048
     Dates: start: 20120522, end: 20120710
  4. MINOMYCIN [Concomitant]
     Indication: LIVER DISORDER
     Route: 041
     Dates: start: 20120523, end: 20120608
  5. POTACOL-R [Concomitant]
     Indication: LIVER DISORDER
     Route: 041
     Dates: start: 20120522, end: 20120608

REACTIONS (2)
  - Liver disorder [Recovered/Resolved]
  - Renal cyst [Not Recovered/Not Resolved]
